FAERS Safety Report 5874450-0 (Version None)
Quarter: 2008Q3

REPORT INFORMATION
  Report Type: 
  Country: None (occurrence: None)
  Receive Date: 20080908
  Receipt Date: 20080827
  Transmission Date: 20090109
  Serious: Yes (Life-Threatening, Hospitalization)
  Sender: FDA-Public Use
  Company Number: JP-PFIZER INC-2008072221

PATIENT
  Age: 85 Year
  Sex: Female

DRUGS (3)
  1. ALDACTONE [Suspect]
     Dosage: DAILY DOSE:25MG
     Route: 048
     Dates: start: 20071201, end: 20080801
  2. BLOPRESS [Suspect]
     Dosage: DAILY DOSE:4MG
     Route: 048
     Dates: start: 20071201, end: 20080801
  3. ALL OTHER THERAPEUTIC PRODUCTS [Concomitant]

REACTIONS (3)
  - BRADYCARDIA [None]
  - DIZZINESS [None]
  - HYPERKALAEMIA [None]
